FAERS Safety Report 7280402-9 (Version None)
Quarter: 2011Q1

REPORT INFORMATION
  Report Type: 
  Country: None (occurrence: None)
  Receive Date: 20110208
  Receipt Date: 20110127
  Transmission Date: 20110831
  Serious: Yes (Other)
  Sender: FDA-Public Use
  Company Number: US-ELI_LILLY_AND_COMPANY-US201101007406

PATIENT
  Sex: Female

DRUGS (12)
  1. VITAMIN D [Concomitant]
     Dosage: 50000 U, WEEKLY (1/W)
  2. PERCOCET [Concomitant]
  3. MULTI-VITAMIN [Concomitant]
  4. ADDERALL 10 [Concomitant]
  5. AMBIEN [Concomitant]
  6. FORTEO [Suspect]
     Indication: OSTEOPOROSIS
     Dosage: 20 UG, DAILY (1/D)
     Dates: start: 20110113
  7. SYNTHROID [Concomitant]
  8. HALCION [Concomitant]
  9. PRISTIQ [Concomitant]
  10. VENTILAN [Concomitant]
  11. PANTOPRAZOL [Concomitant]
  12. VALIUM [Concomitant]

REACTIONS (18)
  - MUSCLE CONTRACTIONS INVOLUNTARY [None]
  - PAINFUL RESPIRATION [None]
  - PAIN [None]
  - INJECTION SITE ERYTHEMA [None]
  - GRAND MAL CONVULSION [None]
  - INJECTION SITE PAIN [None]
  - MEDICATION ERROR [None]
  - MEMORY IMPAIRMENT [None]
  - FATIGUE [None]
  - ASTHENIA [None]
  - DYSGEUSIA [None]
  - FALL [None]
  - INJURY [None]
  - INJECTION SITE OEDEMA [None]
  - CHEST PAIN [None]
  - LOSS OF CONSCIOUSNESS [None]
  - SOMNOLENCE [None]
  - CONTUSION [None]
